FAERS Safety Report 8662956 (Version 2)
Quarter: 2012Q4

REPORT INFORMATION
  Report Type: 
  Country: GB (occurrence: GB)
  Receive Date: 20120712
  Receipt Date: 20121025
  Transmission Date: 20130627
  Serious: Yes (Disabling, Other)
  Sender: FDA-Public Use
  Company Number: GB-ABBOTT-12P-167-0955074-00

PATIENT
  Sex: Male
  Weight: 92.5 kg

DRUGS (2)
  1. HUMIRA 40 MG/ 0.8 ML PRE-FILLED SYRINGE [Suspect]
     Indication: PSORIASIS
     Route: 058
     Dates: start: 20090319
  2. RAMIPRIL [Concomitant]
     Indication: PRODUCT USED FOR UNKNOWN INDICATION
     Route: 048

REACTIONS (5)
  - Retinal vascular thrombosis [Unknown]
  - Vitreous haemorrhage [Recovering/Resolving]
  - Retinal vein occlusion [Recovering/Resolving]
  - Emotional distress [Unknown]
  - Blood pressure abnormal [Unknown]
